FAERS Safety Report 9513764 (Version 1)
Quarter: 2013Q1

REPORT INFORMATION
  Report Type: Spontaneous
  Country: US (occurrence: None)
  Receive Date: 20130305
  Receipt Date: 20130305
  Transmission Date: 20140127
  Serious: Yes (Other)
  Sender: FDA-Public Use
  Company Number: 163-21880-12102294

PATIENT
  Age: 79 Year
  Sex: Female
  Weight: 73.94 kg

DRUGS (6)
  1. REVLIMID [Suspect]
     Indication: PLASMA CELL MYELOMA
     Dosage: 10 MG, 21 IN 28 D, PO
     Route: 048
     Dates: start: 20110912, end: 20120614
  2. FUROSEMIDE (FUROSEMIDE) (UNKNOWN) [Concomitant]
  3. MAGNESIUM (MAGNESIUM) (UNKNOWN) [Concomitant]
  4. POTASSIUM (POTASSIUM) (UNKNOWN) [Concomitant]
  5. SIMVASTATIN (SIMVATATIN) (UNKNOWN) [Concomitant]
  6. ALPRAZOLAM (ALPRAZOLAM) (UNKNOWN) (ALPRAZOLAM) [Concomitant]

REACTIONS (1)
  - Pancytopenia [None]
